FAERS Safety Report 15784048 (Version 6)
Quarter: 2023Q1

REPORT INFORMATION
  Report Type: Report from Study
  Country: US (occurrence: None)
  Receive Date: 20190103
  Receipt Date: 20230316
  Transmission Date: 20230418
  Serious: Yes (Death, Hospitalization, Other)
  Sender: FDA-Public Use
  Company Number: US-ROCHE-2238114

PATIENT
  Sex: Female

DRUGS (3)
  1. ATEZOLIZUMAB [Suspect]
     Active Substance: ATEZOLIZUMAB
     Indication: Inflammatory carcinoma of the breast
     Dosage: BY VEIN OVER ABOUT 30 MINUTES EVERY 2 WEEKS WHILE ON STUDY
     Route: 042
     Dates: start: 20181218, end: 20190528
  2. COBIMETINIB [Suspect]
     Active Substance: COBIMETINIB
     Indication: Inflammatory carcinoma of the breast
     Dosage: ON A 3 WEEKS ON, 1 WEEK OFF SCHEDULE
     Route: 048
     Dates: start: 20181218, end: 20190528
  3. ERIBULIN [Suspect]
     Active Substance: ERIBULIN
     Indication: Inflammatory carcinoma of the breast
     Dosage: BY VEIN OVER ABOUT 5 MINUTES ON DAYS 1 AND 8 OF CYCLES 1-4
     Route: 042
     Dates: start: 20181218, end: 20190528

REACTIONS (3)
  - Dyspnoea [Recovered/Resolved]
  - Pneumonitis [Fatal]
  - Pneumonia [Recovered/Resolved]

NARRATIVE: CASE EVENT DATE: 20181219
